FAERS Safety Report 7534517-8 (Version None)
Quarter: 2011Q2

REPORT INFORMATION
  Report Type: 
  Country: None (occurrence: None)
  Receive Date: 20110609
  Receipt Date: 20090518
  Transmission Date: 20111010
  Serious: Yes (Other)
  Sender: FDA-Public Use
  Company Number: PHHY2009AU10864

PATIENT
  Sex: Male

DRUGS (4)
  1. INTERFERON [Concomitant]
     Dosage: BID
     Dates: start: 20090219, end: 20090224
  2. RIBAVIRIN [Concomitant]
     Dosage: WEEKLY
     Dates: start: 20090212, end: 20090224
  3. CLOZAPINE [Suspect]
     Indication: SCHIZOPHRENIA
     Route: 048
  4. RIBAVIRIN [Concomitant]
     Dosage: UNK
     Dates: start: 20090323

REACTIONS (4)
  - HEPATITIS C VIRUS TEST POSITIVE [None]
  - WHITE BLOOD CELL COUNT DECREASED [None]
  - NEUTROPENIA [None]
  - NEUTROPHIL COUNT DECREASED [None]
